FAERS Safety Report 11324915 (Version 1)
Quarter: 2015Q3

REPORT INFORMATION
  Report Type: Spontaneous
  Country: US (occurrence: US)
  Receive Date: 20150730
  Receipt Date: 20150730
  Transmission Date: 20151125
  Serious: Yes (Other)
  Sender: FDA-Public Use
  Company Number: US-BAYER-2015-386964

PATIENT
  Age: 80 Year
  Sex: Female

DRUGS (3)
  1. COUMADIN [Interacting]
     Active Substance: WARFARIN SODIUM
  2. ACETYLSALICYLIC ACID (} 100 MG) [Suspect]
     Active Substance: ASPIRIN
  3. GLUCAGON. [Concomitant]
     Active Substance: GLUCAGON
     Indication: THERAPEUTIC PROCEDURE

REACTIONS (4)
  - Enteritis [None]
  - Gastrointestinal haemorrhage [None]
  - Iron deficiency anaemia [None]
  - Labelled drug-drug interaction medication error [None]
